FAERS Safety Report 24232398 (Version 6)
Quarter: 2024Q4

REPORT INFORMATION
  Report Type: Spontaneous
  Country: GB (occurrence: GB)
  Receive Date: 20240821
  Receipt Date: 20241111
  Transmission Date: 20250115
  Serious: Yes (Other)
  Sender: CIPLA
  Company Number: GB-ROCHE-2729221

PATIENT

DRUGS (91)
  1. VALGANCICLOVIR [Suspect]
     Active Substance: VALGANCICLOVIR
     Indication: Cytomegalovirus viraemia
     Dosage: 21 MILLIGRAM PER KILOGRAM, UNK
     Route: 065
     Dates: end: 20210513
  2. VALGANCICLOVIR [Suspect]
     Active Substance: VALGANCICLOVIR
     Dosage: UNK
     Route: 065
     Dates: start: 20210426, end: 20210513
  3. DOXORUBICIN HYDROCHLORIDE [Suspect]
     Active Substance: DOXORUBICIN HYDROCHLORIDE
     Indication: Diffuse large B-cell lymphoma
     Dosage: 150 MILLIGRAM/SQ. METER, 1 WEEK (50 MILLIGRAM/SQ. METER, 3XW (50 MG/M2, TIW (DATE OF MOST RECENT DOS
     Route: 065
     Dates: start: 20201124
  4. CYCLOPHOSPHAMIDE [Suspect]
     Active Substance: CYCLOPHOSPHAMIDE
     Indication: Diffuse large B-cell lymphoma
     Dosage: 1260 MILLIGRAM/SQ. METER, 1260 MG/M2, EVERY 3 WEEK, TOTAL VOLUME PRIOR AE 313 ML, DATE OF MOSTE RECE
     Route: 042
     Dates: start: 20201124
  5. CYCLOPHOSPHAMIDE [Suspect]
     Active Substance: CYCLOPHOSPHAMIDE
     Dosage: UNK
     Route: 042
  6. CYCLOPHOSPHAMIDE [Suspect]
     Active Substance: CYCLOPHOSPHAMIDE
     Dosage: 3780 MILLIGRAM/SQ. METER, 1 WEEK (1260 MG/M2, EVERY 3 WEEK, TOTAL VOLUME PRIOR AE 313 ML, DATE OF MO
     Route: 042
     Dates: start: 20201124
  7. CYCLOPHOSPHAMIDE [Suspect]
     Active Substance: CYCLOPHOSPHAMIDE
     Dosage: UNK
     Route: 042
  8. CYCLOPHOSPHAMIDE [Suspect]
     Active Substance: CYCLOPHOSPHAMIDE
     Dosage: UNK
     Route: 042
  9. CYCLOPHOSPHAMIDE [Suspect]
     Active Substance: CYCLOPHOSPHAMIDE
     Dosage: UNK
     Route: 042
  10. CYCLOPHOSPHAMIDE [Suspect]
     Active Substance: CYCLOPHOSPHAMIDE
     Dosage: UNK
     Route: 065
  11. DOXORUBICIN [Suspect]
     Active Substance: DOXORUBICIN
     Indication: Diffuse large B-cell lymphoma
     Dosage: 50 MILLIGRAM/SQ. METER
     Route: 042
     Dates: start: 20201124
  12. DOXORUBICIN [Suspect]
     Active Substance: DOXORUBICIN
     Dosage: 80 MILLIGRAM/SQ. METER, 3 WEEK (ON DAY 1 OF EACH 21-DAY CYCLEDATE OF MOST RECENT DOSE PRIOR TO FIRST
     Route: 065
     Dates: start: 20201124
  13. DOXORUBICIN [Suspect]
     Active Substance: DOXORUBICIN
     Dosage: UNK
     Route: 042
  14. DOXORUBICIN [Suspect]
     Active Substance: DOXORUBICIN
     Dosage: UNK
     Route: 042
  15. DOXORUBICIN [Suspect]
     Active Substance: DOXORUBICIN
     Dosage: UNK
     Route: 042
  16. DOXORUBICIN [Suspect]
     Active Substance: DOXORUBICIN
     Dosage: UNK
     Route: 065
  17. DOXORUBICIN [Suspect]
     Active Substance: DOXORUBICIN
     Dosage: UNK
     Route: 042
  18. GLOFITAMAB [Suspect]
     Active Substance: GLOFITAMAB
     Indication: Diffuse large B-cell lymphoma
     Dosage: 2.5 MILLIGRAM, EVERY 3 WEEKS
     Route: 065
  19. GLOFITAMAB [Suspect]
     Active Substance: GLOFITAMAB
     Dosage: 2.5 MILLIGRAM, EVERY 2 WEEK (THE MOST RECENT DOSE OF RO7082859 (10 MG) WAS ADMINISTERED ON 30/DEC/20
     Route: 042
     Dates: start: 20201222
  20. GLOFITAMAB [Suspect]
     Active Substance: GLOFITAMAB
     Dosage: UNK
     Route: 042
  21. GLOFITAMAB [Suspect]
     Active Substance: GLOFITAMAB
     Dosage: UNK
     Route: 042
  22. GLOFITAMAB [Suspect]
     Active Substance: GLOFITAMAB
     Dosage: UNK
     Route: 065
  23. GLOFITAMAB [Suspect]
     Active Substance: GLOFITAMAB
     Dosage: UNK
     Route: 065
  24. GLOFITAMAB [Suspect]
     Active Substance: GLOFITAMAB
     Dosage: UNK
     Route: 042
  25. GLOFITAMAB [Suspect]
     Active Substance: GLOFITAMAB
     Dosage: UNK
     Route: 042
  26. GLOFITAMAB [Suspect]
     Active Substance: GLOFITAMAB
     Dosage: UNK
     Route: 042
  27. PREDNISOLONE [Suspect]
     Active Substance: PREDNISOLONE
     Indication: Diffuse large B-cell lymphoma
     Dosage: 100MG
     Route: 048
     Dates: start: 20201118, end: 20201122
  28. PREDNISOLONE [Suspect]
     Active Substance: PREDNISOLONE
     Dosage: 100 MILLIGRAM (DATE OF MOST RECENT DOSE PRIOR TO FIRST EPISODE OF NEUTROPENIA 24/NOV/2020.DATE OF
     Route: 048
     Dates: start: 20201124
  29. PREDNISOLONE [Suspect]
     Active Substance: PREDNISOLONE
     Dosage: 100 MILLIGRAM (DATE OF MOST RECENT DOSE PRIOR TO FIRST EPISODE OF NEUTROPENIA 24/NOV/2020.DATE OF
     Route: 048
     Dates: start: 20201124
  30. PREDNISOLONE [Suspect]
     Active Substance: PREDNISOLONE
     Dosage: 100 MILLIGRAM
     Route: 065
     Dates: start: 20201124
  31. PREDNISOLONE [Suspect]
     Active Substance: PREDNISOLONE
     Dosage: UNK
     Route: 065
  32. PREDNISOLONE [Suspect]
     Active Substance: PREDNISOLONE
     Dosage: UNK
     Route: 065
  33. RITUXIMAB [Suspect]
     Active Substance: RITUXIMAB
     Indication: Diffuse large B-cell lymphoma
     Dosage: 600 MILLIGRAM/SQ. METER, 3 WEEK (TOTAL VOLUME PRIOR AE 560 ML DATE OF MOST RECENT DOSE PRIOR TO FIRS
     Route: 042
     Dates: start: 20201124
  34. RITUXIMAB [Suspect]
     Active Substance: RITUXIMAB
     Dosage: 9 MILLIGRAM/SQ. METER (TOTAL VOLUME PRIOR AE 560 MLDATE OF MOST RECENT DOSE PRIOR TO FIRST EPISODE O
     Route: 065
     Dates: start: 20201124
  35. RITUXIMAB [Suspect]
     Active Substance: RITUXIMAB
     Dosage: 1000 MILLIGRAM
     Route: 065
     Dates: start: 20201215
  36. RITUXIMAB [Suspect]
     Active Substance: RITUXIMAB
     Dosage: 9 MILLILITER, 1 WEEK (3 ML, TIW, TIME INTERVAL: 0.33 WK)
     Route: 065
     Dates: start: 20201221, end: 20201221
  37. RITUXIMAB [Suspect]
     Active Substance: RITUXIMAB
     Dosage: 1000 MILLIGRAM
     Route: 065
     Dates: start: 20210302
  38. RITUXIMAB [Suspect]
     Active Substance: RITUXIMAB
     Dosage: 2.5 MILLIGRAM, EVERY 3 WEEKS
     Route: 065
     Dates: start: 20201222
  39. RITUXIMAB [Suspect]
     Active Substance: RITUXIMAB
     Dosage: 1800 MILLIGRAM, 1 WEEK (600 MG, TIW)
     Route: 042
     Dates: start: 20210105, end: 20210216
  40. RITUXIMAB [Suspect]
     Active Substance: RITUXIMAB
     Dosage: 100 MILLIGRAM
     Route: 065
     Dates: start: 20210126
  41. RITUXIMAB [Suspect]
     Active Substance: RITUXIMAB
     Dosage: 20 MILLIGRAM
     Route: 065
     Dates: start: 20210209
  42. RITUXIMAB [Suspect]
     Active Substance: RITUXIMAB
     Dosage: 9 MILLILITER, 1 WEEK (3 ML, TIW)
     Route: 065
     Dates: start: 20210216, end: 20210216
  43. RITUXIMAB [Suspect]
     Active Substance: RITUXIMAB
     Dosage: 100 MG/M2 (100MG)
     Route: 065
     Dates: start: 20210216, end: 20210216
  44. VINCRISTINE [Suspect]
     Active Substance: VINCRISTINE
     Indication: Diffuse large B-cell lymphoma
     Dosage: 6 MILLIGRAM/SQ. METER, ONCE A WEEK (2 MILLIGRAM/SQ. METER, 3XW (TOTAL VOLUME: 50 MLDATE OF MOST RECE
     Route: 065
     Dates: start: 20201124
  45. VINCRISTINE [Suspect]
     Active Substance: VINCRISTINE
     Dosage: 27 MILLIGRAM/SQ. METER, 1 WEEK (9 MILLIGRAM/SQ. METER, 3XW (9 MG/M2, THREE TIMES IN WEEK, TOTAL VOLU
     Route: 065
     Dates: start: 20201124
  46. VINCRISTINE [Suspect]
     Active Substance: VINCRISTINE
     Dosage: UNK (9 MG/M2, THREE TIMES IN WEEK, TOTAL VOLUME: 50 ML DATE OF MOST RECENT DOSE PRIOR TO FIRST EPISO
     Route: 065
     Dates: start: 20201121
  47. VINCRISTINE [Suspect]
     Active Substance: VINCRISTINE
     Dosage: 2 MILLIGRAM/SQ. METER, EVERY 3 WEEKS (9 MG/M2, THREE TIMES IN WEEK, 2 MILLIGRAM/SQ. METER, TOTAL VOL
     Route: 065
  48. VINCRISTINE [Suspect]
     Active Substance: VINCRISTINE
     Dosage: UNK
     Route: 065
  49. VINCRISTINE [Suspect]
     Active Substance: VINCRISTINE
     Dosage: UNK
     Route: 065
  50. VINCRISTINE [Suspect]
     Active Substance: VINCRISTINE
     Dosage: UNK
     Route: 065
  51. VINCRISTINE [Suspect]
     Active Substance: VINCRISTINE
     Dosage: UNK
     Route: 065
  52. VINCRISTINE [Suspect]
     Active Substance: VINCRISTINE
     Dosage: UNK
     Route: 065
  53. BENDAMUSTINE [Suspect]
     Active Substance: BENDAMUSTINE
     Indication: Prophylaxis
     Dosage: UNK, 2 REGIMENS
     Route: 065
  54. ALLOPURINOL [Concomitant]
     Active Substance: ALLOPURINOL
     Indication: Prophylaxis
     Dosage: UNK
     Route: 065
     Dates: start: 20201118
  55. CHLORPHENIRAMINE MALEATE [Concomitant]
     Active Substance: CHLORPHENIRAMINE MALEATE
     Indication: Rash maculo-papular
     Dosage: 10 MILLIGRAM, EVERY 3 WEEK, DOSE LAST STUDY DRUG ADMIN PRIOR AE 1260 MG START AD END DATE OF MOST RE
     Route: 065
     Dates: start: 20201124, end: 20201124
  56. CHLORPHENIRAMINE MALEATE [Concomitant]
     Active Substance: CHLORPHENIRAMINE MALEATE
     Indication: Prophylaxis
     Dosage: 10 MILLIGRAM
     Route: 065
     Dates: start: 20201215, end: 20201215
  57. CHLORPHENIRAMINE MALEATE [Concomitant]
     Active Substance: CHLORPHENIRAMINE MALEATE
     Dosage: 10 MILLIGRAM
     Route: 065
     Dates: start: 20201217
  58. CHLORPHENIRAMINE MALEATE [Concomitant]
     Active Substance: CHLORPHENIRAMINE MALEATE
     Dosage: 10 MILLIGRAM
     Route: 065
     Dates: start: 20210119, end: 20210119
  59. CHLORPHENIRAMINE MALEATE [Concomitant]
     Active Substance: CHLORPHENIRAMINE MALEATE
     Dosage: 10 MILLIGRAM
     Route: 065
     Dates: start: 20210126, end: 20210126
  60. CHLORPHENIRAMINE MALEATE [Concomitant]
     Active Substance: CHLORPHENIRAMINE MALEATE
     Dosage: 10 MILLIGRAM
     Route: 065
     Dates: start: 20210209, end: 20210209
  61. CHLORPHENIRAMINE MALEATE [Concomitant]
     Active Substance: CHLORPHENIRAMINE MALEATE
     Dosage: 10 MILLIGRAM
     Route: 065
     Dates: start: 20210216, end: 20210216
  62. CHLORPHENIRAMINE MALEATE [Concomitant]
     Active Substance: CHLORPHENIRAMINE MALEATE
     Dosage: 10 MILLIGRAM
     Route: 065
     Dates: start: 20210302, end: 20210302
  63. CHLORPHENIRAMINE MALEATE [Concomitant]
     Active Substance: CHLORPHENIRAMINE MALEATE
     Dosage: 10 MILLIGRAM
     Route: 065
     Dates: start: 20210309, end: 20210309
  64. CHLORPHENIRAMINE MALEATE [Concomitant]
     Active Substance: CHLORPHENIRAMINE MALEATE
     Dosage: UNK
     Route: 065
     Dates: start: 20210323, end: 20210323
  65. CODEINE [Concomitant]
     Active Substance: CODEINE
     Indication: Pain
     Dosage: UNK
     Route: 065
     Dates: start: 20201123
  66. CODEINE [Concomitant]
     Active Substance: CODEINE
     Dosage: 30 MILLIGRAM, PRN
     Route: 065
     Dates: start: 20201224, end: 20201224
  67. DEXAMETHASONE [Concomitant]
     Active Substance: DEXAMETHASONE
     Indication: Product used for unknown indication
     Dosage: 20 MILLIGRAM
     Route: 042
     Dates: start: 20210119, end: 20210119
  68. DEXAMETHASONE [Concomitant]
     Active Substance: DEXAMETHASONE
     Dosage: 20 MILLIGRAM
     Route: 042
     Dates: start: 20210209, end: 20210209
  69. DEXAMETHASONE [Concomitant]
     Active Substance: DEXAMETHASONE
     Dosage: 20 MILLIGRAM
     Route: 042
     Dates: start: 20210302, end: 20210302
  70. DEXAMETHASONE [Concomitant]
     Active Substance: DEXAMETHASONE
     Dosage: 20 MILLIGRAM
     Route: 042
     Dates: start: 20210323, end: 20210323
  71. FILGRASTIM [Concomitant]
     Active Substance: FILGRASTIM
     Indication: Prophylaxis
     Dosage: UNK,
     Route: 065
     Dates: start: 20201129, end: 20201206
  72. FILGRASTIM [Concomitant]
     Active Substance: FILGRASTIM
     Dosage: UNK,
     Route: 065
     Dates: start: 20201220
  73. OMEPRAZOLE [Concomitant]
     Active Substance: OMEPRAZOLE
     Indication: Gastrointestinal disorder prophylaxis
     Dosage: UNK
     Route: 065
     Dates: start: 20201118
  74. OMEPRAZOLE [Concomitant]
     Active Substance: OMEPRAZOLE
     Dosage: UNK
     Route: 065
  75. ACETAMINOPHEN [Concomitant]
     Active Substance: ACETAMINOPHEN
     Indication: Prophylaxis
     Dosage: UNK
     Route: 065
     Dates: start: 20201123
  76. ACETAMINOPHEN [Concomitant]
     Active Substance: ACETAMINOPHEN
     Dosage: 1000 MILLIGRAM
     Route: 048
     Dates: start: 20201124, end: 20201124
  77. ACETAMINOPHEN [Concomitant]
     Active Substance: ACETAMINOPHEN
     Dosage: 1000 MILLIGRAM
     Route: 048
     Dates: start: 20201215, end: 20201215
  78. ACETAMINOPHEN [Concomitant]
     Active Substance: ACETAMINOPHEN
     Dosage: 1000 MILLIGRAM
     Route: 048
     Dates: start: 20210119, end: 20210119
  79. ACETAMINOPHEN [Concomitant]
     Active Substance: ACETAMINOPHEN
     Dosage: 1000 MILLIGRAM
     Route: 065
     Dates: start: 20210126, end: 20210126
  80. ACETAMINOPHEN [Concomitant]
     Active Substance: ACETAMINOPHEN
     Dosage: 1000 MILLIGRAM
     Route: 065
     Dates: start: 20210209, end: 20210209
  81. ACETAMINOPHEN [Concomitant]
     Active Substance: ACETAMINOPHEN
     Dosage: 1000 MILLIGRAM
     Route: 065
     Dates: start: 20210216, end: 20210216
  82. ACETAMINOPHEN [Concomitant]
     Active Substance: ACETAMINOPHEN
     Dosage: 1000 MILLIGRAM
     Route: 065
     Dates: start: 20210302, end: 20210302
  83. ACETAMINOPHEN [Concomitant]
     Active Substance: ACETAMINOPHEN
     Dosage: 1000 MILLIGRAM
     Route: 065
     Dates: start: 20210309, end: 20210309
  84. ACETAMINOPHEN [Concomitant]
     Active Substance: ACETAMINOPHEN
     Dosage: 1000 MILLIGRAM
     Route: 048
     Dates: start: 20210323, end: 20210323
  85. ACETAMINOPHEN [Concomitant]
     Active Substance: ACETAMINOPHEN
     Dosage: 1000 MILLIGRAM
     Route: 065
     Dates: start: 20210126, end: 20210126
  86. SENNA LEAF [Concomitant]
     Active Substance: SENNA LEAF
     Indication: Constipation
     Dosage: UNK
     Route: 065
     Dates: start: 20201124
  87. SENOKOT [Concomitant]
     Active Substance: SENNOSIDES
     Indication: Constipation
     Dosage: UNK, SENNA PODS POWDERED
     Route: 065
  88. SENOKOT [Concomitant]
     Active Substance: SENNOSIDES
     Dosage: UNK, SENNA PODS POWDERED
     Route: 065
     Dates: start: 20201124
  89. PREDNISOLONE [Concomitant]
     Active Substance: PREDNISOLONE
     Indication: Diffuse large B-cell lymphoma
     Dosage: UNK
     Route: 048
     Dates: start: 20201118, end: 20201122
  90. PREDNISOLONE [Concomitant]
     Active Substance: PREDNISOLONE
     Dosage: UNK
     Route: 065
     Dates: start: 20201124
  91. COVID-19 VACCINE [Concomitant]
     Indication: Product used for unknown indication
     Dosage: UNK
     Route: 065

REACTIONS (3)
  - Off label use [Unknown]
  - Product use in unapproved indication [Unknown]
  - Neutropenia [Recovered/Resolved]

NARRATIVE: CASE EVENT DATE: 20201124
